FAERS Safety Report 13479187 (Version 5)
Quarter: 2018Q1

REPORT INFORMATION
  Report Type: Report from Study
  Country: US (occurrence: US)
  Receive Date: 20170424
  Receipt Date: 20180125
  Transmission Date: 20180508
  Serious: No
  Sender: FDA-Public Use
  Company Number: US-AMGEN-USASL2017013871

PATIENT
  Age: 59 Year
  Sex: Female

DRUGS (2)
  1. REPATHA [Suspect]
     Active Substance: EVOLOCUMAB
     Indication: HYPERCHOLESTEROLAEMIA
     Dosage: 140 MG, Q2WK
     Route: 065
     Dates: start: 201612
  2. REPATHA [Suspect]
     Active Substance: EVOLOCUMAB
     Indication: HYPERLIPIDAEMIA

REACTIONS (15)
  - Nail cuticle fissure [Recovered/Resolved]
  - Weight increased [Unknown]
  - Hyperphagia [Unknown]
  - Insomnia [Not Recovered/Not Resolved]
  - Food craving [Unknown]
  - Vitreous floaters [Recovered/Resolved]
  - Hunger [Unknown]
  - Adverse event [Unknown]
  - Blood triglycerides increased [Unknown]
  - Visual impairment [Unknown]
  - Impaired healing [Recovered/Resolved]
  - Dry eye [Unknown]
  - Metabolic disorder [Unknown]
  - Dysgeusia [Unknown]
  - Oral herpes [Unknown]
